FAERS Safety Report 9520682 (Version 1)
Quarter: 2013Q3

REPORT INFORMATION
  Report Type: Spontaneous
  Country: CA (occurrence: CA)
  Receive Date: 20130913
  Receipt Date: 20130913
  Transmission Date: 20140515
  Serious: Yes (Hospitalization, Other)
  Sender: FDA-Public Use
  Company Number: CA-AMGEN-CANSP2013063883

PATIENT
  Age: 70 Year
  Sex: Female

DRUGS (9)
  1. ENBREL [Suspect]
     Indication: PSORIASIS
     Dosage: 50 MG, UNK
     Route: 065
     Dates: start: 20121224
  2. RATIO ATORVASTATIN [Concomitant]
     Dosage: UNK
  3. ACCUPRIL [Concomitant]
     Dosage: UNK
  4. D TABS [Concomitant]
     Dosage: UNK
  5. ESTRACE [Concomitant]
     Dosage: UNK
  6. INDERAL [Concomitant]
     Dosage: UNK
  7. TEVA RISEDRONATE [Concomitant]
     Dosage: UNK
  8. CALCIUM [Concomitant]
     Dosage: UNK
  9. MEDROXYPROGESTERONE                /00115202/ [Concomitant]
     Dosage: UNK

REACTIONS (2)
  - Diverticulitis [Recovered/Resolved]
  - Bronchitis [Recovered/Resolved]
